FAERS Safety Report 4827920-8 (Version None)
Quarter: 2005Q4

REPORT INFORMATION
  Report Type: 
  Country: None (occurrence: None)
  Receive Date: 20051114
  Receipt Date: 20051114
  Transmission Date: 20060501
  Serious: Yes (Death)
  Sender: FDA-Public Use
  Company Number: None

PATIENT
  Age: 90 Year
  Sex: Female

DRUGS (2)
  1. HALOPERIDOL [Suspect]
     Dosage: INJECTION
  2. HALOPERIDOL [Suspect]
     Dosage: TABLET

REACTIONS (9)
  - CARDIAC DISORDER [None]
  - DYSKINESIA [None]
  - ERYTHEMA [None]
  - EYE ROLLING [None]
  - MEDICATION ERROR [None]
  - MUSCULOSKELETAL STIFFNESS [None]
  - STUPOR [None]
  - SWELLING FACE [None]
  - TARDIVE DYSKINESIA [None]
